FAERS Safety Report 4634789-3 (Version None)
Quarter: 2005Q2

REPORT INFORMATION
  Report Type: 
  Country: None (occurrence: None)
  Receive Date: 20050412
  Receipt Date: 20050331
  Transmission Date: 20051028
  Serious: Yes (Death, Hospitalization)
  Sender: FDA-Public Use
  Company Number: 2005-00030

PATIENT
  Age: 63 Year
  Sex: Male

DRUGS (2)
  1. VELCADE [Suspect]
     Indication: NON-HODGKIN'S LYMPHOMA
     Dosage: INTRAVENOUS
     Route: 042
     Dates: start: 20041102
  2. RITUXIMAB (RITUXIMAB) [Concomitant]

REACTIONS (26)
  - AGITATION [None]
  - ANAEMIA [None]
  - ASCITES [None]
  - BLOOD ALBUMIN DECREASED [None]
  - BLOOD PH DECREASED [None]
  - BLOOD PRESSURE IMMEASURABLE [None]
  - COMA [None]
  - DISEASE PROGRESSION [None]
  - HEPATOSPLENOMEGALY [None]
  - HYDRONEPHROSIS [None]
  - HYPOTENSION [None]
  - ILEUS [None]
  - MULTI-ORGAN FAILURE [None]
  - NEUTROPENIA [None]
  - NON-HODGKIN'S LYMPHOMA [None]
  - PLATELET COUNT DECREASED [None]
  - PLEURAL EFFUSION [None]
  - PNEUMONIA [None]
  - PROTEIN TOTAL DECREASED [None]
  - PULMONARY ALVEOLAR HAEMORRHAGE [None]
  - PULSE ABSENT [None]
  - RENAL DISORDER [None]
  - RENAL FAILURE ACUTE [None]
  - RESPIRATORY DISTRESS [None]
  - RESPIRATORY FAILURE [None]
  - SEPSIS [None]
